FAERS Safety Report 10024566 (Version 1)
Quarter: 2014Q1

REPORT INFORMATION
  Report Type: Spontaneous
  Country: US (occurrence: None)
  Receive Date: 20140205
  Receipt Date: 20140205
  Transmission Date: 20141002
  Serious: Yes (Hospitalization)
  Sender: FDA-Public Use
  Company Number: 2010S1004718

PATIENT
  Age: 44 Year
  Sex: Female
  Weight: 104.33 kg

DRUGS (2)
  1. PHOSPHO-SODA [Suspect]
     Indication: COLONOSCOPY
     Route: 048
  2. LISINOPRIL/HYDROCHLOROTHIAZIDE (HYDROCHLOROTHIAZIDE, LISINOPRIL) [Concomitant]

REACTIONS (8)
  - Irritable bowel syndrome [None]
  - Pneumonia [None]
  - Renal failure acute [None]
  - Hypertension [None]
  - Ejection fraction decreased [None]
  - IgA nephropathy [None]
  - Dialysis [None]
  - Injury [None]
